FAERS Safety Report 9394996 (Version 1)
Quarter: 2013Q3

REPORT INFORMATION
  Report Type: Spontaneous
  Country: CN (occurrence: CN)
  Receive Date: 20130711
  Receipt Date: 20130711
  Transmission Date: 20140515
  Serious: Yes (Hospitalization, Other)
  Sender: FDA-Public Use
  Company Number: CN-PFIZER INC-2013199411

PATIENT
  Age: 3 Decade
  Sex: Female

DRUGS (1)
  1. XALATAN [Suspect]
     Indication: INTRAOCULAR PRESSURE INCREASED
     Dosage: 1 DROP IN RIGHT EYE, ONCE DAILY
     Route: 047
     Dates: start: 201207, end: 2013

REACTIONS (1)
  - Keratoconus [Not Recovered/Not Resolved]
